FAERS Safety Report 14914974 (Version 1)
Quarter: 2018Q2

REPORT INFORMATION
  Report Type: Spontaneous
  Country: GB (occurrence: DE)
  Receive Date: 20180518
  Receipt Date: 20180518
  Transmission Date: 20180711
  Serious: Yes (Death)
  Sender: FDA-Public Use
  Company Number: GB-BAUSCH-BL-2018-014119

PATIENT
  Age: 58 Year
  Sex: Female
  Weight: 54 kg

DRUGS (46)
  1. IOXITALAMATE MEGLUMINE [Suspect]
     Active Substance: MEGLUMINE IOXITHALAMATE
     Indication: X-RAY
     Route: 048
     Dates: start: 19950115, end: 19950115
  2. METALCAPTASE [Suspect]
     Active Substance: PENICILLAMINE
     Indication: SCLERODERMA
     Route: 048
     Dates: start: 19941229, end: 19950124
  3. SOLU-DECORTIN-H [Concomitant]
     Active Substance: PREDNISOLONE SODIUM SUCCINATE
     Indication: HYPERSENSITIVITY
     Route: 042
     Dates: start: 19950117, end: 19950117
  4. TRAMAL [Concomitant]
     Active Substance: TRAMADOL
     Indication: PAIN
     Dosage: DOSAGE FORM: UNSPECIFIED
     Route: 048
     Dates: start: 19950118, end: 19950121
  5. ZANTAC [Concomitant]
     Active Substance: RANITIDINE HYDROCHLORIDE
     Indication: HYPERSENSITIVITY
     Route: 042
     Dates: start: 19950117, end: 19950117
  6. NATRIUMHYDROGENCARBONAT [Concomitant]
     Active Substance: SODIUM BICARBONATE
     Indication: ACIDOSIS
     Route: 042
     Dates: start: 19950118, end: 19950118
  7. ENALAPRIL MALEATE. [Suspect]
     Active Substance: ENALAPRIL MALEATE
     Indication: HYPERTENSION
     Route: 048
     Dates: start: 19941230, end: 19950124
  8. FLUIMUCIL [Suspect]
     Active Substance: ACETYLCYSTEINE
     Indication: COUGH
     Route: 048
     Dates: start: 19950120, end: 19950331
  9. AUGMENTIN [Suspect]
     Active Substance: AMOXICILLIN\CLAVULANATE POTASSIUM
     Indication: INFECTION
     Route: 048
     Dates: start: 19950117, end: 19950117
  10. TAZOBAC [Suspect]
     Active Substance: PIPERACILLIN SODIUM\TAZOBACTAM SODIUM
     Indication: INFECTION
     Route: 042
     Dates: end: 19950101
  11. LOPIRIN COR [Concomitant]
     Active Substance: CAPTOPRIL
     Indication: HYPERTENSION
     Route: 048
     Dates: start: 19941229, end: 19941229
  12. ANTRA [Concomitant]
     Active Substance: OMEPRAZOLE
     Indication: ULCER
     Route: 048
     Dates: start: 19950118, end: 19950124
  13. TEMGESIC [Concomitant]
     Active Substance: BUPRENORPHINE HYDROCHLORIDE
     Indication: PAIN
     Route: 060
     Dates: start: 19950124, end: 19950124
  14. ERYPO (EPOETIN ALFA) [Suspect]
     Active Substance: ERYTHROPOIETIN
     Route: 058
     Dates: start: 19950117, end: 19950117
  15. BEN-U-RON (PARACETAMOL) [Suspect]
     Active Substance: ACETAMINOPHEN
     Indication: PYREXIA
     Route: 054
     Dates: start: 19950117, end: 19950117
  16. IMODIUM [Concomitant]
     Active Substance: LOPERAMIDE HYDROCHLORIDE
     Indication: DIARRHOEA
     Route: 048
     Dates: start: 19950118, end: 19950119
  17. URBASON [Concomitant]
     Active Substance: METHYLPREDNISOLONE
     Indication: SCLERODERMA
     Route: 048
     Dates: end: 19950331
  18. PEPDUL [Concomitant]
     Indication: ULCER
     Route: 048
     Dates: end: 19950117
  19. ERYTHROCIN [Concomitant]
     Active Substance: ERYTHROMYCIN LACTOBIONATE
     Indication: INFECTION
     Route: 042
     Dates: start: 19950118, end: 19950118
  20. FLUIMUCIL [Suspect]
     Active Substance: ACETYLCYSTEINE
     Route: 048
     Dates: start: 19950117, end: 19950118
  21. MONO EMBOLEX [Concomitant]
     Active Substance: CERTOPARIN SODIUM
     Indication: THROMBOSIS PROPHYLAXIS
     Route: 058
     Dates: end: 19950331
  22. PIRETANIDE [Concomitant]
     Active Substance: PIRETANIDE
     Indication: HYPERTENSION
     Route: 048
     Dates: start: 19941228, end: 19941228
  23. NEUPOGEN [Concomitant]
     Active Substance: FILGRASTIM
     Indication: LEUKOPENIA
     Route: 058
     Dates: start: 19950124, end: 19950124
  24. CLEMASTINE [Concomitant]
     Active Substance: CLEMASTINE
     Indication: HYPERSENSITIVITY
     Route: 042
     Dates: start: 19950117, end: 19950117
  25. REMESTAN [Suspect]
     Active Substance: TEMAZEPAM
     Indication: SLEEP DISORDER
     Route: 048
     Dates: end: 19950113
  26. SENNA [Suspect]
     Active Substance: SENNA LEAF\SENNOSIDES\SENNOSIDES A AND B
     Indication: CONSTIPATION
     Route: 048
     Dates: start: 19950113, end: 19950114
  27. IMUREK [Suspect]
     Active Substance: AZATHIOPRINE
     Route: 048
     Dates: start: 19950119, end: 19950119
  28. ERYPO (EPOETIN ALFA) [Suspect]
     Active Substance: ERYTHROPOIETIN
     Route: 058
     Dates: start: 19950105, end: 19950105
  29. DULCOLAX NOS [Suspect]
     Active Substance: BISACODYL OR DOCUSATE SODIUM
     Indication: CONSTIPATION
     Route: 054
     Dates: start: 19950115, end: 19950115
  30. DIFLUCAN [Concomitant]
     Active Substance: FLUCONAZOLE
     Indication: FUNGAL INFECTION
     Route: 048
     Dates: start: 19950120, end: 19950124
  31. ISOPTIN [Concomitant]
     Active Substance: VERAPAMIL HYDROCHLORIDE
     Route: 048
     Dates: start: 19941229, end: 19950124
  32. ADALAT [Concomitant]
     Active Substance: NIFEDIPINE
     Indication: HYPERTENSION
     Route: 048
     Dates: start: 19941228, end: 19941228
  33. TRENTAL [Suspect]
     Active Substance: PENTOXIFYLLINE
     Indication: CARDIOVASCULAR DISORDER
     Route: 065
     Dates: start: 19950117, end: 19950124
  34. ERYPO (EPOETIN ALFA) [Suspect]
     Active Substance: ERYTHROPOIETIN
     Route: 058
     Dates: start: 19950114, end: 19950114
  35. IMUREK [Suspect]
     Active Substance: AZATHIOPRINE
     Indication: SCLERODERMA
     Route: 048
     Dates: start: 19950113, end: 19950116
  36. ERYPO (EPOETIN ALFA) [Suspect]
     Active Substance: ERYTHROPOIETIN
     Indication: ANAEMIA
     Route: 058
     Dates: start: 19950103, end: 19950103
  37. ROHYPNOL [Suspect]
     Active Substance: FLUNITRAZEPAM
     Indication: SLEEP DISORDER
     Route: 048
     Dates: start: 19950114, end: 19950123
  38. NOVALGIN (METAMIZOLE SODIUM) [Suspect]
     Active Substance: METAMIZOLE SODIUM
     Indication: PYREXIA
     Route: 042
     Dates: start: 19941228, end: 19941228
  39. NACL [Concomitant]
     Active Substance: SODIUM CHLORIDE
     Indication: HYPONATRAEMIA
     Route: 042
     Dates: start: 19950117, end: 19950117
  40. PASPERTIN [Concomitant]
     Indication: NAUSEA
     Route: 048
     Dates: start: 19941228, end: 19941228
  41. SAROTEN [Concomitant]
     Active Substance: AMITRIPTYLINE
     Indication: DEPRESSION
     Route: 048
     Dates: start: 19950124, end: 19950331
  42. ERYPO (EPOETIN ALFA) [Suspect]
     Active Substance: ERYTHROPOIETIN
     Dates: start: 19950110, end: 19950110
  43. ERYPO (EPOETIN ALFA) [Suspect]
     Active Substance: ERYTHROPOIETIN
     Route: 058
     Dates: start: 19950107, end: 19950107
  44. LASIX [Suspect]
     Active Substance: FUROSEMIDE
     Indication: RENAL FAILURE
     Route: 048
     Dates: start: 19950113, end: 19950331
  45. ASPIRIN. [Suspect]
     Active Substance: ASPIRIN
     Indication: ARRHYTHMIA
     Route: 048
     Dates: end: 19950331
  46. ISOPTIN [Concomitant]
     Active Substance: VERAPAMIL HYDROCHLORIDE
     Indication: ARRHYTHMIA
     Route: 048
     Dates: start: 19941228, end: 19941228

REACTIONS (3)
  - Brain injury [Fatal]
  - Renal failure [Fatal]
  - Toxic epidermal necrolysis [Fatal]

NARRATIVE: CASE EVENT DATE: 19950117
